FAERS Safety Report 15357042 (Version 1)
Quarter: 2018Q3

REPORT INFORMATION
  Report Type: Spontaneous
  Country: US (occurrence: US)
  Receive Date: 20180830
  Receipt Date: 20180830
  Transmission Date: 20181010
  Serious: No
  Sender: FDA-Public Use
  Company Number: None

PATIENT
  Age: 91 Year
  Sex: Female

DRUGS (1)
  1. PROCRIT [Suspect]
     Active Substance: ERYTHROPOIETIN
     Dates: start: 201708

REACTIONS (4)
  - Fatigue [None]
  - Product use complaint [None]
  - Drug dose omission [None]
  - Insurance issue [None]

NARRATIVE: CASE EVENT DATE: 20180829
